FAERS Safety Report 8968923 (Version 1)
Quarter: 2012Q4

REPORT INFORMATION
  Report Type: Spontaneous
  Country: US (occurrence: None)
  Receive Date: 20121214
  Receipt Date: 20121214
  Transmission Date: 20130627
  Serious: Yes (Other)
  Sender: FDA-Public Use
  Company Number: None

PATIENT
  Age: 49 Year
  Sex: Female
  Weight: 81.65 kg

DRUGS (3)
  1. VENLAFAXINE [Suspect]
     Indication: MAJOR DEPRESSIVE DISORDER NOS
     Dosage: i qD po
     Route: 048
  2. VENLAFAXINE [Suspect]
     Indication: SOCIAL ANXIETY DISORDER
     Dosage: i qD po
     Route: 048
  3. VENLAFAXINE [Suspect]

REACTIONS (2)
  - Drug ineffective [None]
  - Product substitution issue [None]
